FAERS Safety Report 5381419-1 (Version None)
Quarter: 2007Q3

REPORT INFORMATION
  Report Type: 
  Country: None (occurrence: None)
  Receive Date: 20070709
  Receipt Date: 20070629
  Transmission Date: 20080115
  Serious: Yes (Hospitalization, Other)
  Sender: FDA-Public Use
  Company Number: US-NOVOPROD-258820

PATIENT
  Age: 60 Year
  Sex: Female

DRUGS (4)
  1. ACTIVELLA [Suspect]
     Indication: MENOPAUSE
     Dosage: UNK, QD
     Route: 048
     Dates: end: 20060701
  2. MOBIC [Concomitant]
     Indication: ILL-DEFINED DISORDER
     Dosage: UNKNOWN
     Dates: start: 20060701
  3. SOMA [Concomitant]
     Indication: ILL-DEFINED DISORDER
     Dosage: UNKNOWN
     Dates: start: 20060701
  4. ULTRACET [Concomitant]
     Indication: ILL-DEFINED DISORDER
     Dosage: UNKNOWN
     Dates: start: 20060701

REACTIONS (1)
  - ENDOMETRIAL CANCER [None]
